FAERS Safety Report 8588983 (Version 4)
Quarter: 2013Q1

REPORT INFORMATION
  Report Type: Spontaneous
  Country: US (occurrence: US)
  Receive Date: 20120531
  Receipt Date: 20130125
  Transmission Date: 20140127
  Serious: Yes (Hospitalization, Other)
  Sender: FDA-Public Use
  Company Number: US-ELI_LILLY_AND_COMPANY-US201205008789

PATIENT
  Age: 70 None
  Sex: Female

DRUGS (2)
  1. FORTEO [Suspect]
     Indication: OSTEOPOROSIS
     Dosage: 20 UG, QD
     Dates: start: 201107
  2. FORTEO [Suspect]
     Dosage: 20 UG, QD

REACTIONS (7)
  - Cerebrovascular accident [Unknown]
  - Spinal nerve stimulator implantation [Unknown]
  - Pneumonia [Recovering/Resolving]
  - Abdominal pain upper [Unknown]
  - Back pain [Unknown]
  - Device malfunction [Unknown]
  - Influenza [Unknown]
